FAERS Safety Report 8306961-2 (Version None)
Quarter: 2012Q2

REPORT INFORMATION
  Report Type: 
  Country: None (occurrence: None)
  Receive Date: 20120424
  Receipt Date: 20120411
  Transmission Date: 20120825
  Serious: No
  Sender: FDA-Public Use
  Company Number: AU-JNJFOC-20120405257

PATIENT
  Sex: Male

DRUGS (1)
  1. DURAGESIC-100 [Suspect]
     Indication: PRODUCT USED FOR UNKNOWN INDICATION
     Route: 062

REACTIONS (4)
  - HYPERHIDROSIS [None]
  - PRODUCT ADHESION ISSUE [None]
  - BREAKTHROUGH PAIN [None]
  - WRONG TECHNIQUE IN DRUG USAGE PROCESS [None]
